FAERS Safety Report 23841581 (Version 1)
Quarter: 2024Q2

REPORT INFORMATION
  Report Type: Other
  Country: IN (occurrence: IN)
  Receive Date: 20240510
  Receipt Date: 20240510
  Transmission Date: 20240716
  Serious: Yes (Hospitalization)
  Sender: FDA-Public Use
  Company Number: IN-B.Braun Medical Inc.-2156843

PATIENT
  Sex: Female

DRUGS (1)
  1. METRONIDAZOLE [Suspect]
     Active Substance: METRONIDAZOLE
     Indication: Suicide attempt

REACTIONS (3)
  - Encephalitis [Recovered/Resolved]
  - Intentional overdose [Recovered/Resolved]
  - Off label use [Recovered/Resolved]
